FAERS Safety Report 18168339 (Version 1)
Quarter: 2020Q3

REPORT INFORMATION
  Report Type: Spontaneous
  Country: US (occurrence: US)
  Receive Date: 20200818
  Receipt Date: 20200818
  Transmission Date: 20201103
  Serious: Yes (Other)
  Sender: FDA-Public Use
  Company Number: None

PATIENT
  Age: 33 Year
  Sex: Female
  Weight: 79.38 kg

DRUGS (3)
  1. SALT TABS [Concomitant]
     Active Substance: SODIUM CHLORIDE
  2. VITAMIN D [Concomitant]
     Active Substance: VITAMIN D NOS
  3. PARAGARD T 380A [Suspect]
     Active Substance: COPPER

REACTIONS (3)
  - Embedded device [None]
  - Ectopic pregnancy [None]
  - Complication associated with device [None]
